FAERS Safety Report 13022031 (Version 1)
Quarter: 2016Q4

REPORT INFORMATION
  Report Type: Spontaneous
  Country: US (occurrence: US)
  Receive Date: 20161213
  Receipt Date: 20161213
  Transmission Date: 20170207
  Serious: No
  Sender: FDA-Public Use
  Company Number: US-ASTRAZENECA-2016SF28319

PATIENT
  Age: 50 Year
  Sex: Female

DRUGS (2)
  1. LACTULOSE. [Concomitant]
     Active Substance: LACTULOSE
  2. MOVANTIK [Suspect]
     Active Substance: NALOXEGOL OXALATE
     Indication: CONSTIPATION
     Route: 048

REACTIONS (2)
  - Drug ineffective [Unknown]
  - Weight decreased [Unknown]
